FAERS Safety Report 16265297 (Version 2)
Quarter: 2020Q2

REPORT INFORMATION
  Report Type: Spontaneous
  Country: US (occurrence: US)
  Receive Date: 20190502
  Receipt Date: 20200408
  Transmission Date: 20200713
  Serious: Yes (Other)
  Sender: FDA-Public Use
  Company Number: US-GILEAD-2019-0405363

PATIENT
  Sex: Male

DRUGS (1)
  1. COMPLERA [Suspect]
     Active Substance: EMTRICITABINE\RILPIVIRINE HYDROCHLORIDE\TENOFOVIR DISOPROXIL FUMARATE
     Indication: HIV INFECTION
     Dosage: UNK
     Route: 048
     Dates: start: 201301, end: 201406

REACTIONS (7)
  - Renal failure [Unknown]
  - Pain [Unknown]
  - Anxiety [Unknown]
  - Economic problem [Unknown]
  - Anhedonia [Unknown]
  - Chronic kidney disease [Unknown]
  - Emotional distress [Unknown]
